FAERS Safety Report 7579026-5 (Version None)
Quarter: 2011Q2

REPORT INFORMATION
  Report Type: 
  Country: None (occurrence: None)
  Receive Date: 20110628
  Receipt Date: 20110621
  Transmission Date: 20111010
  Serious: Yes (Death)
  Sender: FDA-Public Use
  Company Number: US-PFIZER INC-2011138546

PATIENT
  Sex: Female

DRUGS (2)
  1. VFEND [Suspect]
     Indication: ACUTE MYELOID LEUKAEMIA
     Dosage: 200 MG, 2X/DAY
  2. VFEND [Suspect]
     Indication: ASPERGILLOSIS

REACTIONS (1)
  - DEATH [None]
